FAERS Safety Report 7637748-1 (Version None)
Quarter: 2011Q3

REPORT INFORMATION
  Report Type: 
  Country: None (occurrence: None)
  Receive Date: 20110727
  Receipt Date: 20110720
  Transmission Date: 20111222
  Serious: Yes (Hospitalization)
  Sender: FDA-Public Use
  Company Number: TR-BIOGENIDEC-2011BI016372

PATIENT
  Age: 27 Year
  Sex: Female

DRUGS (6)
  1. NOOTROPIL [Concomitant]
     Indication: BIPOLAR DISORDER
     Route: 048
  2. TYSABRI [Suspect]
     Route: 042
     Dates: start: 20110429, end: 20110429
  3. TYSABRI [Suspect]
     Indication: RELAPSING-REMITTING MULTIPLE SCLEROSIS
     Route: 042
     Dates: start: 20081201, end: 20101223
  4. DEPAKENE [Concomitant]
     Indication: BIPOLAR DISORDER
     Route: 048
  5. SERTRALINE HYDROCHLORIDE [Concomitant]
     Indication: BIPOLAR DISORDER
     Route: 048
  6. INVEGA [Concomitant]
     Indication: BIPOLAR DISORDER
     Route: 048

REACTIONS (2)
  - PULMONARY EMBOLISM [None]
  - MULTIPLE SCLEROSIS RELAPSE [None]
